FAERS Safety Report 7540636-2 (Version None)
Quarter: 2011Q2

REPORT INFORMATION
  Report Type: 
  Country: None (occurrence: None)
  Receive Date: 20110610
  Receipt Date: 20110329
  Transmission Date: 20111010
  Serious: Yes (Hospitalization)
  Sender: FDA-Public Use
  Company Number: PHHY2011CA26471

PATIENT
  Age: 68 Year
  Sex: Female

DRUGS (4)
  1. HYDROCHLOROTHIAZIDE [Suspect]
  2. PRAVASTATIN [Concomitant]
  3. ACEBUTOLOL [Concomitant]
  4. METFORMIN HCL [Suspect]

REACTIONS (3)
  - JAUNDICE [None]
  - PANCREATIC CARCINOMA [None]
  - WEIGHT DECREASED [None]
